FAERS Safety Report 21579239 (Version 1)
Quarter: 2022Q4

REPORT INFORMATION
  Report Type: Spontaneous
  Country: US (occurrence: None)
  Receive Date: 20221110
  Receipt Date: 20221110
  Transmission Date: 20230113
  Serious: Yes (Disabling, Other)
  Sender: FDA-Public Use
  Company Number: None

PATIENT
  Age: 52 Year
  Sex: Male
  Weight: 94.5 kg

DRUGS (12)
  1. ABILIFY [Suspect]
     Active Substance: ARIPIPRAZOLE
     Indication: Depression
     Dosage: OTHER QUANTITY : 1 TABLET(S);?
     Route: 048
  2. EMGALITY [Concomitant]
     Active Substance: GALCANEZUMAB-GNLM
  3. NUCYNTA [Concomitant]
     Active Substance: TAPENTADOL HYDROCHLORIDE
  4. DULOXETINE [Concomitant]
     Active Substance: DULOXETINE
  5. CLONAZEPAM [Concomitant]
     Active Substance: CLONAZEPAM
  6. BACLOFEN [Concomitant]
     Active Substance: BACLOFEN
  7. ROPINIROLE [Concomitant]
     Active Substance: ROPINIROLE
  8. AUSTEDO [Concomitant]
     Active Substance: DEUTETRABENAZINE
  9. Bariatric [Concomitant]
  10. multi vitamin [Concomitant]
  11. CITRUCEL [Concomitant]
     Active Substance: METHYLCELLULOSE (4000 MPA.S)
  12. VITAMIN D3 [Concomitant]
     Active Substance: CHOLECALCIFEROL

REACTIONS (3)
  - Tardive dyskinesia [None]
  - Muscle spasms [None]
  - Dyskinesia [None]

NARRATIVE: CASE EVENT DATE: 20191002
